FAERS Safety Report 10350958 (Version 3)
Quarter: 2014Q4

REPORT INFORMATION
  Report Type: Spontaneous
  Country: JP (occurrence: JP)
  Receive Date: 20140730
  Receipt Date: 20141130
  Transmission Date: 20150528
  Serious: Yes (Death, Other)
  Sender: FDA-Public Use
  Company Number: PHHY2014JP092946

PATIENT
  Age: 89 Year
  Sex: Male

DRUGS (3)
  1. EXELON PATCH [Suspect]
     Active Substance: RIVASTIGMINE
     Indication: DEMENTIA ALZHEIMER^S TYPE
     Dosage: 4.5 MG, DAILY
     Route: 062
     Dates: start: 20131004, end: 20131019
  2. PLAVIX [Concomitant]
     Active Substance: CLOPIDOGREL BISULFATE
     Indication: PRODUCT USED FOR UNKNOWN INDICATION
     Dosage: 75 MG, UNK
     Route: 062
     Dates: start: 20131004, end: 20131019
  3. MAGMITT [Concomitant]
     Active Substance: MAGNESIUM OXIDE
     Indication: PRODUCT USED FOR UNKNOWN INDICATION
     Dosage: 330 MG, UNK
     Route: 062
     Dates: start: 20131004, end: 20131019

REACTIONS (7)
  - Pyrexia [Fatal]
  - Atelectasis [Fatal]
  - Pneumonia [Fatal]
  - Pleural effusion [Fatal]
  - Aspiration [Fatal]
  - Decreased appetite [Unknown]
  - Wheezing [Fatal]

NARRATIVE: CASE EVENT DATE: 20131019
